FAERS Safety Report 7647019-5 (Version None)
Quarter: 2011Q3

REPORT INFORMATION
  Report Type: 
  Country: None (occurrence: None)
  Receive Date: 20110801
  Receipt Date: 20110720
  Transmission Date: 20111222
  Serious: Yes (Hospitalization)
  Sender: FDA-Public Use
  Company Number: IE-JNJFOC-20110707482

PATIENT
  Age: 41 Year
  Sex: Female

DRUGS (4)
  1. REMICADE [Suspect]
     Route: 042
     Dates: start: 20090423
  2. REMICADE [Suspect]
     Indication: COLITIS ULCERATIVE
     Dosage: THE PATIENT HAD 17 PREVIOUS INFLIXIMAB INFUSIONS
     Route: 042
     Dates: start: 20110222
  3. REMICADE [Suspect]
     Route: 042
  4. REMICADE [Suspect]
     Route: 042
     Dates: start: 20110408

REACTIONS (5)
  - TACHYCARDIA [None]
  - PALPITATIONS [None]
  - INFUSION RELATED REACTION [None]
  - FLUSHING [None]
  - PYREXIA [None]
